FAERS Safety Report 20698660 (Version 1)
Quarter: 2022Q2

REPORT INFORMATION
  Report Type: Spontaneous
  Country: ES (occurrence: ES)
  Receive Date: 20220412
  Receipt Date: 20220412
  Transmission Date: 20220720
  Serious: Yes (Hospitalization)
  Sender: FDA-Public Use
  Company Number: ES-BoehringerIngelheim-2022-BI-164286

PATIENT

DRUGS (1)
  1. DABIGATRAN [Suspect]
     Active Substance: DABIGATRAN
     Indication: Product used for unknown indication

REACTIONS (1)
  - Heart transplant [Unknown]

NARRATIVE: CASE EVENT DATE: 20220407
